FAERS Safety Report 5418370-4 (Version None)
Quarter: 2007Q3

REPORT INFORMATION
  Report Type: 
  Country: None (occurrence: None)
  Receive Date: 20070817
  Receipt Date: 20070715
  Transmission Date: 20080115
  Serious: Yes (Other)
  Sender: FDA-Public Use
  Company Number: SE-JNJFOC-20070802795

PATIENT
  Age: 56 Year
  Sex: Male

DRUGS (4)
  1. TOPAMAX [Suspect]
     Indication: EPILEPSY
  2. LISKANTIN [Concomitant]
     Indication: DRUG USE FOR UNKNOWN INDICATION
  3. FOLACIN [Concomitant]
     Indication: DRUG USE FOR UNKNOWN INDICATION
  4. WARAN [Concomitant]
     Indication: THROMBOSIS PROPHYLAXIS

REACTIONS (3)
  - AMNESIA [None]
  - DEMENTIA ALZHEIMER'S TYPE [None]
  - SLEEP DISORDER [None]
